FAERS Safety Report 6580707-0 (Version None)
Quarter: 2010Q1

REPORT INFORMATION
  Report Type: 
  Country: None (occurrence: None)
  Receive Date: 20100212
  Receipt Date: 20100204
  Transmission Date: 20100710
  Serious: Yes (Hospitalization)
  Sender: FDA-Public Use
  Company Number: US-MERCK-1002USA00051

PATIENT
  Sex: Female

DRUGS (10)
  1. COZAAR [Suspect]
     Indication: HYPERTENSION
     Route: 048
     Dates: start: 20070101
  2. PRINIVIL [Suspect]
     Route: 048
  3. ATENOLOL [Concomitant]
     Route: 065
  4. ZOCOR [Concomitant]
     Route: 048
  5. HECTOROL [Concomitant]
     Route: 065
  6. HYDROCHLOROTHIAZIDE [Concomitant]
     Route: 065
  7. FELODIPINE [Concomitant]
     Route: 065
  8. VITAMIN D (UNSPECIFIED) [Concomitant]
     Route: 065
  9. CENTRUM SILVER [Concomitant]
     Route: 065
  10. GLUCOSAMINE [Concomitant]
     Route: 065

REACTIONS (2)
  - ANGIOEDEMA [None]
  - HYPERSENSITIVITY [None]
